FAERS Safety Report 4300122-X (Version None)
Quarter: 2004Q1

REPORT INFORMATION
  Report Type: 
  Country: None (occurrence: None)
  Receive Date: 20040218
  Receipt Date: 20040209
  Transmission Date: 20041129
  Serious: Yes (Hospitalization)
  Sender: FDA-Public Use
  Company Number: 200214587FR

PATIENT
  Age: 45 Year
  Sex: Female

DRUGS (11)
  1. HYDROCORTISONE [Suspect]
     Indication: MULTIPLE SCLEROSIS
     Dosage: 25 MG/DAY PO
     Route: 048
     Dates: start: 20010801
  2. VIOXX [Suspect]
     Dosage: 25 MG/DAY PO
     Route: 048
     Dates: start: 20020401
  3. SINTROM [Suspect]
  4. OMEPRAZOLE [Suspect]
     Indication: HYPERTHYROIDISM
     Dosage: PO
     Route: 048
     Dates: start: 19960101
  5. REBIF [Suspect]
     Dosage: SC
     Route: 058
     Dates: start: 20010423, end: 20020913
  6. FENOFIBRATE [Suspect]
     Dosage: 200 MG/DAY PO
     Route: 048
     Dates: start: 19950101
  7. ETIDRONATE DISODIUM (DIDRONEL) [Concomitant]
  8. ERGOCALCIFEROL, CALCIUM PHOSPHATE, CALCIUM SODIUM [Concomitant]
  9. LACTATE (CALCIUM WITH VITAMIN D) [Concomitant]
  10. PRAZEPAM (LYSANXIA 10 MG) [Concomitant]
  11. TRAMADOL HYDROCHLORIDE (CONTRAMAL) [Concomitant]

REACTIONS (2)
  - GOITRE [None]
  - HYPERTHYROIDISM [None]
